FAERS Safety Report 14088854 (Version 1)
Quarter: 2017Q4

REPORT INFORMATION
  Report Type: Spontaneous
  Country: US (occurrence: US)
  Receive Date: 20171013
  Receipt Date: 20171013
  Transmission Date: 20180321
  Serious: Yes (Other)
  Sender: FDA-Public Use
  Company Number: US-PFIZER INC-2017437248

PATIENT
  Age: 67 Year
  Sex: Male
  Weight: 195 kg

DRUGS (2)
  1. TYLENOL [Suspect]
     Active Substance: ACETAMINOPHEN
     Indication: PROCEDURAL PAIN
     Dosage: 2000 MG, DAILY
  2. ADVIL [Suspect]
     Active Substance: IBUPROFEN
     Indication: PROCEDURAL PAIN
     Dosage: 1600 MG, DAILY (ABOUT 5 WEEKS)

REACTIONS (4)
  - Internal haemorrhage [Unknown]
  - Intentional product misuse [Unknown]
  - Drug ineffective [Unknown]
  - Intentional overdose [Unknown]
